FAERS Safety Report 16120491 (Version 1)
Quarter: 2019Q1

REPORT INFORMATION
  Report Type: Spontaneous
  Country: GB (occurrence: GB)
  Receive Date: 20190326
  Receipt Date: 20190326
  Transmission Date: 20190418
  Serious: Yes (Disabling)
  Sender: FDA-Public Use
  Company Number: GB-ABBVIE-19K-167-2712717-00

PATIENT
  Age: 45 Year
  Sex: Female
  Weight: 85 kg

DRUGS (7)
  1. PARACETAMOL [Concomitant]
     Active Substance: ACETAMINOPHEN
     Indication: PRODUCT USED FOR UNKNOWN INDICATION
  2. HUMIRA [Suspect]
     Active Substance: ADALIMUMAB
     Route: 058
     Dates: start: 201702, end: 201807
  3. HUMIRA [Suspect]
     Active Substance: ADALIMUMAB
     Indication: RHEUMATOID ARTHRITIS
     Route: 058
     Dates: start: 201503, end: 201510
  4. CITALOPRAM HYDROCHLORIDE [Concomitant]
     Active Substance: CITALOPRAM HYDROCHLORIDE
     Indication: PRODUCT USED FOR UNKNOWN INDICATION
  5. METFORMIN HYDROCHLORIDE. [Concomitant]
     Active Substance: METFORMIN HYDROCHLORIDE
     Indication: PRODUCT USED FOR UNKNOWN INDICATION
  6. SULFASALAZINE. [Concomitant]
     Active Substance: SULFASALAZINE
     Indication: PRODUCT USED FOR UNKNOWN INDICATION
  7. CLONIDINE HYDROCHLORIDE. [Concomitant]
     Active Substance: CLONIDINE HYDROCHLORIDE
     Indication: PRODUCT USED FOR UNKNOWN INDICATION

REACTIONS (16)
  - Cerebellar syndrome [Unknown]
  - Muscular weakness [Unknown]
  - Demyelination [Recovered/Resolved with Sequelae]
  - Micturition urgency [Unknown]
  - Urinary tract infection [Unknown]
  - Eye movement disorder [Unknown]
  - Hyperintensity in brain deep nuclei [Unknown]
  - Condition aggravated [Unknown]
  - Memory impairment [Unknown]
  - Romberg test positive [Unknown]
  - Ataxia [Unknown]
  - Arthritis [Unknown]
  - Gait disturbance [Unknown]
  - Nystagmus [Unknown]
  - Disturbance in attention [Unknown]
  - Hypertonia [Unknown]

NARRATIVE: CASE EVENT DATE: 201708
